FAERS Safety Report 6480134-0 (Version None)
Quarter: 2009Q4

REPORT INFORMATION
  Report Type: 
  Country: None (occurrence: None)
  Receive Date: 20091208
  Receipt Date: 20091125
  Transmission Date: 20100525
  Serious: Yes (Other)
  Sender: FDA-Public Use
  Company Number: PHHY2009JP49588

PATIENT
  Age: 31 Year
  Sex: Male

DRUGS (17)
  1. TEGRETOL [Suspect]
     Indication: TRIGEMINAL NEURALGIA
     Dosage: 1000 MG, UNK
     Dates: start: 19860101
  2. TEGRETOL [Suspect]
     Dosage: 600 MG, UNK
  3. TEGRETOL [Suspect]
     Dosage: 1600 MG, UNK
  4. TEGRETOL [Suspect]
     Dosage: 600 MG, UNK
  5. TEGRETOL [Suspect]
     Dosage: 1400 MG, UNK
  6. TEGRETOL [Suspect]
     Dosage: 400 MG, UNK
  7. TEGRETOL [Suspect]
     Dosage: 1100 MG, UNK
  8. TEGRETOL [Suspect]
     Dosage: 1200 MG PER DAY
  9. TEGRETOL [Suspect]
     Dosage: 1400 MG PER DAY
  10. TEGRETOL [Suspect]
     Dosage: 1300 MG PER DAY
  11. TEGRETOL [Suspect]
     Dosage: 400 MG PER DAY
  12. TEGRETOL [Suspect]
     Dosage: 1100 MG PER DAY
  13. KAKKON-TO [Concomitant]
     Indication: TRIGEMINAL NEURALGIA
     Dosage: UNK
  14. SAIKOKEISHITOU [Concomitant]
     Indication: TRIGEMINAL NEURALGIA
     Dosage: UNK
  15. KEISIKAJUTUBUTO [Concomitant]
     Indication: TRIGEMINAL NEURALGIA
     Dosage: UNK
  16. ACONINSUN [Concomitant]
     Dosage: UNK
  17. CINNAMON [Concomitant]

REACTIONS (6)
  - GAMMA-GLUTAMYLTRANSFERASE INCREASED [None]
  - HOT FLUSH [None]
  - HYPERTHERMIA MALIGNANT [None]
  - PAIN [None]
  - PERIPHERAL NERVE DECOMPRESSION [None]
  - POST PROCEDURAL COMPLICATION [None]
